FAERS Safety Report 9800451 (Version 2)
Quarter: 2014Q1

REPORT INFORMATION
  Report Type: Spontaneous
  Country: ES (occurrence: ES)
  Receive Date: 20140107
  Receipt Date: 20140128
  Transmission Date: 20141002
  Serious: No
  Sender: FDA-Public Use
  Company Number: ES-009507513-1312ESP005495

PATIENT
  Sex: Female

DRUGS (1)
  1. ELOCOM [Suspect]
     Indication: VOMITING
     Dosage: UNK
     Route: 048
     Dates: start: 20131210, end: 20131210

REACTIONS (3)
  - Accidental exposure to product [Unknown]
  - Incorrect route of drug administration [Unknown]
  - No adverse event [Unknown]
